FAERS Safety Report 17409557 (Version 1)
Quarter: 2020Q1

REPORT INFORMATION
  Report Type: Spontaneous
  Country: CA (occurrence: CA)
  Receive Date: 20200212
  Receipt Date: 20200212
  Transmission Date: 20200409
  Serious: Yes (Hospitalization, Congenital Anomaly, Other)
  Sender: FDA-Public Use
  Company Number: CA-TEVA-2020-CA-1183228

PATIENT
  Age: 12 Year
  Sex: Male
  Weight: 53 kg

DRUGS (21)
  1. GRANISETRON HYDROCHLORIDE. [Suspect]
     Active Substance: GRANISETRON HYDROCHLORIDE
     Indication: VOMITING
     Dosage: 2 MILLIGRAM DAILY;
     Route: 048
  2. PMS-OLANZAPINE [Suspect]
     Active Substance: OLANZAPINE
     Indication: ANXIETY
     Dosage: 5 MILLIGRAM DAILY;
     Route: 048
  3. VINCRISTINE SULFATE. [Suspect]
     Active Substance: VINCRISTINE SULFATE
     Indication: PRODUCT USED FOR UNKNOWN INDICATION
     Route: 042
  4. METHOTREXATE. [Suspect]
     Active Substance: METHOTREXATE
     Route: 042
  5. PMS-OLANZAPINE [Suspect]
     Active Substance: OLANZAPINE
     Indication: AFFECTIVE DISORDER
     Route: 065
  6. DOCUSATE SODIUM. [Concomitant]
     Active Substance: DOCUSATE SODIUM
     Route: 048
  7. ONCASPAR [Concomitant]
     Active Substance: PEGASPARGASE
     Route: 030
  8. PROPOFOL. [Concomitant]
     Active Substance: PROPOFOL
     Route: 065
  9. ROCURONIUM [Concomitant]
     Active Substance: ROCURONIUM BROMIDE
     Route: 042
  10. SUPRANE [Concomitant]
     Active Substance: DESFLURANE
     Route: 042
  11. PMS-OLANZAPINE [Suspect]
     Active Substance: OLANZAPINE
     Indication: NAUSEA
     Route: 065
  12. FENTANYL. [Concomitant]
     Active Substance: FENTANYL
     Route: 042
  13. METHOTREXATE. [Suspect]
     Active Substance: METHOTREXATE
     Indication: PRODUCT USED FOR UNKNOWN INDICATION
     Route: 037
  14. PMS-OLANZAPINE [Suspect]
     Active Substance: OLANZAPINE
     Indication: DECREASED APPETITE
     Route: 065
  15. SEPTRA [Concomitant]
     Active Substance: SULFAMETHOXAZOLE\TRIMETHOPRIM
     Route: 048
  16. SUCCINYL CHOLINE CHLORIDE [Concomitant]
     Route: 042
  17. SUCRALFATE. [Concomitant]
     Active Substance: SUCRALFATE
     Dosage: 4 GRAM DAILY;
     Route: 048
  18. OMEPRAZOLE. [Concomitant]
     Active Substance: OMEPRAZOLE
     Dosage: 20 MILLIGRAM DAILY;
     Route: 048
  19. VINCRISTINE SULFATE. [Concomitant]
     Active Substance: VINCRISTINE SULFATE
     Route: 042
  20. DOCUSATE SODIUM/SENNA ALEXANDRINA [Concomitant]
     Route: 065
  21. PROPOFOL. [Concomitant]
     Active Substance: PROPOFOL
     Route: 042

REACTIONS (31)
  - Diarrhoea [Recovered/Resolved]
  - Neurotoxicity [Recovered/Resolved]
  - Pyrexia [Recovered/Resolved]
  - Sinusitis [Recovered/Resolved]
  - Weight decreased [Recovered/Resolved]
  - Condition aggravated [Recovered/Resolved]
  - Dizziness [Recovered/Resolved]
  - Gilbert^s syndrome [Recovered/Resolved]
  - Myoclonus [Recovered/Resolved]
  - Oropharyngeal pain [Recovered/Resolved]
  - Aphasia [Recovered/Resolved]
  - Blood pressure fluctuation [Recovered/Resolved]
  - Drug ineffective [Recovered/Resolved]
  - Mucous stools [Recovered/Resolved]
  - Neuroleptic malignant syndrome [Recovered/Resolved]
  - Skin ulcer [Recovered/Resolved]
  - Fatigue [Recovered/Resolved]
  - Loose tooth [Recovered/Resolved]
  - Mental status changes [Recovered/Resolved]
  - Somnolence [Recovered/Resolved]
  - Tinnitus [Recovered/Resolved]
  - Emotional distress [Recovered/Resolved]
  - Headache [Recovered/Resolved]
  - Malaise [Recovered/Resolved]
  - Serotonin syndrome [Recovered/Resolved]
  - Anal fissure [Recovered/Resolved]
  - Asthenia [Recovered/Resolved]
  - Gait inability [Recovered/Resolved]
  - Myalgia [Recovered/Resolved]
  - Nausea [Recovered/Resolved]
  - Vomiting [Recovered/Resolved]
